FAERS Safety Report 17828679 (Version 1)
Quarter: 2020Q2

REPORT INFORMATION
  Report Type: Spontaneous
  Country: US (occurrence: US)
  Receive Date: 20200527
  Receipt Date: 20200527
  Transmission Date: 20200714
  Serious: Yes (Hospitalization)
  Sender: FDA-Public Use
  Company Number: None

PATIENT
  Age: 62 Year
  Sex: Male
  Weight: 158 kg

DRUGS (1)
  1. RIVAROXABAN (RIVAROXABAN 20MG TAB ) [Suspect]
     Active Substance: RIVAROXABAN
     Indication: ATRIAL FIBRILLATION
     Route: 058
     Dates: start: 20160909

REACTIONS (6)
  - Abdominal pain [None]
  - Nausea [None]
  - Vomiting [None]
  - Gastrointestinal arteriovenous malformation [None]
  - Haemorrhage [None]
  - Blood urine present [None]
